FAERS Safety Report 12765657 (Version 1)
Quarter: 2016Q3

REPORT INFORMATION
  Report Type: Spontaneous
  Country: US (occurrence: US)
  Receive Date: 20160915
  Receipt Date: 20160915
  Transmission Date: 20161109
  Serious: No
  Sender: FDA-Public Use
  Company Number: None

PATIENT
  Age: 58 Year
  Sex: Male

DRUGS (1)
  1. VANCOMYCIN 100 MG/ML FRESENIUS [Suspect]
     Active Substance: VANCOMYCIN
     Indication: BACTERAEMIA
     Dosage: VANCOMYCIN 1250 MG Q12H VIA GRAVITY
     Dates: start: 20160617, end: 20160718

REACTIONS (7)
  - Dry mouth [None]
  - Erythema [None]
  - Drug dose omission [None]
  - Thirst [None]
  - Incorrect drug administration rate [None]
  - Feeling abnormal [None]
  - Abdominal discomfort [None]

NARRATIVE: CASE EVENT DATE: 20160716
